FAERS Safety Report 6384356-9 (Version None)
Quarter: 2009Q3

REPORT INFORMATION
  Report Type: 
  Country: None (occurrence: None)
  Receive Date: 20090929
  Receipt Date: 20090914
  Transmission Date: 20100115
  Serious: Yes (Other)
  Sender: FDA-Public Use
  Company Number: B0594835A

PATIENT
  Age: 12 Month
  Sex: Female

DRUGS (7)
  1. BUSULPHAN         (GENERIC) (BUSULFAN) [Suspect]
     Indication: BONE MARROW TRANSPLANT
     Dosage: ORAL
     Route: 048
  2. MELPHALAN TABLET (GENERIC) (MELPHALAN) [Suspect]
     Indication: BONE MARROW TRANSPLANT
  3. CYCLOPHOSPHAMIDE [Suspect]
     Indication: BONE MARROW TRANSPLANT
  4. ALEMTUZUMAB (FORMULATION UNKNOWN) (ALEMTUZUMAB) [Suspect]
     Indication: PROPHYLAXIS AGAINST TRANSPLANT REJECTION
  5. CYCLOSPORINE [Suspect]
     Indication: PROPHYLAXIS AGAINST TRANSPLANT REJECTION
  6. METHOTREXATE (FORMULATION UNKNOWN) (METHOTREXATE) [Suspect]
     Indication: PROPHYLAXIS AGAINST TRANSPLANT REJECTION
  7. ANTI-INFECTIVE MEDICATION (FORMULATION UNKNOWN) (ANTI-INFECTIVE MEDICA [Suspect]

REACTIONS (3)
  - ADENOVIRUS INFECTION [None]
  - EPSTEIN-BARR VIRAEMIA [None]
  - VIRAEMIA [None]
